FAERS Safety Report 9376104 (Version 1)
Quarter: 2013Q2

REPORT INFORMATION
  Report Type: Spontaneous
  Country: TR (occurrence: TR)
  Receive Date: 20130629
  Receipt Date: 20130629
  Transmission Date: 20140414
  Serious: Yes (Life-Threatening, Hospitalization)
  Sender: FDA-Public Use
  Company Number: TR-MYLANLABS-2013S1013682

PATIENT
  Age: 49 Year
  Sex: Male

DRUGS (1)
  1. DICLOFENAC [Suspect]
     Indication: HYPERAEMIA
     Route: 030

REACTIONS (3)
  - Kounis syndrome [Recovered/Resolved]
  - Acute myocardial infarction [Recovered/Resolved]
  - Cardiac arrest [Recovered/Resolved]
